FAERS Safety Report 5691397-3 (Version None)
Quarter: 2008Q2

REPORT INFORMATION
  Report Type: 
  Country: None (occurrence: None)
  Receive Date: 20080402
  Receipt Date: 20080226
  Transmission Date: 20081010
  Serious: No
  Sender: FDA-Public Use
  Company Number: PR-BAYER-200815552NA

PATIENT
  Age: 70 Year
  Sex: Female
  Weight: 83 kg

DRUGS (3)
  1. MAGNEVIST [Suspect]
     Indication: ANGIOGRAM
     Route: 042
     Dates: start: 20080222, end: 20080222
  2. TOPROL [Concomitant]
     Route: 065
  3. ATACAND [Concomitant]

REACTIONS (2)
  - PAIN [None]
  - SWELLING [None]
